FAERS Safety Report 7425171-4 (Version None)
Quarter: 2011Q2

REPORT INFORMATION
  Report Type: 
  Country: None (occurrence: None)
  Receive Date: 20110414
  Receipt Date: 20110330
  Transmission Date: 20111010
  Serious: Yes (Other)
  Sender: FDA-Public Use
  Company Number: 2011SP014738

PATIENT
  Age: 28 Year
  Sex: Female

DRUGS (1)
  1. DULERA TABLET [Suspect]
     Indication: ASTHMA
     Dosage: ;INH
     Route: 055
     Dates: start: 20110324, end: 20110324

REACTIONS (1)
  - ANAPHYLACTIC REACTION [None]
